FAERS Safety Report 7573979-7 (Version None)
Quarter: 2011Q2

REPORT INFORMATION
  Report Type: 
  Country: None (occurrence: None)
  Receive Date: 20110627
  Receipt Date: 20110615
  Transmission Date: 20111010
  Serious: Yes (Other)
  Sender: FDA-Public Use
  Company Number: US-AMGEN-USASP2011022904

PATIENT
  Age: 83 Year
  Sex: Female
  Weight: 58.503 kg

DRUGS (8)
  1. PROCRIT [Suspect]
     Dosage: UNK
     Dates: start: 20090501, end: 20101025
  2. BONIVA [Concomitant]
  3. CYMBALTA [Concomitant]
  4. PROCRIT [Suspect]
     Dosage: UNK, Q2WK
     Route: 058
     Dates: start: 20110101
  5. PROCRIT [Suspect]
     Indication: MYELODYSPLASTIC SYNDROME
     Dosage: 60000 IU, QWK
     Dates: start: 20100101, end: 20110426
  6. CARVEDILOL [Concomitant]
  7. METOPROLOL TARTRATE [Concomitant]
  8. ASPIRIN [Concomitant]

REACTIONS (6)
  - APLASIA PURE RED CELL [None]
  - THERAPEUTIC RESPONSE DECREASED [None]
  - ANTI-ERYTHROPOIETIN ANTIBODY POSITIVE [None]
  - NEUTRALISING ANTIBODIES POSITIVE [None]
  - REFRACTORY ANAEMIA [None]
  - DYSPLASIA [None]
